FAERS Safety Report 9203799 (Version 1)
Quarter: 2013Q2

REPORT INFORMATION
  Report Type: Spontaneous
  Country: US (occurrence: US)
  Receive Date: 20130402
  Receipt Date: 20130402
  Transmission Date: 20140414
  Serious: Yes (Other)
  Sender: FDA-Public Use
  Company Number: US-PFIZER INC-2013102631

PATIENT
  Sex: Male

DRUGS (3)
  1. XANAX [Suspect]
     Dosage: UNK
  2. KETOCONAZOLE [Interacting]
     Indication: TINEA INFECTION
     Dosage: UNK
  3. EXELON [Suspect]
     Dosage: UNK

REACTIONS (6)
  - Drug interaction [Unknown]
  - Confusional state [Unknown]
  - Delusion [Unknown]
  - Movement disorder [Unknown]
  - Feeling abnormal [Unknown]
  - Tinea infection [Unknown]
